FAERS Safety Report 6795552-0 (Version None)
Quarter: 2010Q2

REPORT INFORMATION
  Report Type: 
  Country: None (occurrence: None)
  Receive Date: 20100625
  Receipt Date: 20100617
  Transmission Date: 20101027
  Serious: Yes (Hospitalization)
  Sender: FDA-Public Use
  Company Number: GB-AMGEN-KDC413615

PATIENT
  Sex: Female

DRUGS (7)
  1. DENOSUMAB [Suspect]
     Indication: OSTEOPOROSIS POSTMENOPAUSAL
     Route: 058
     Dates: start: 20080430, end: 20091027
  2. SULPHASALAZINE [Suspect]
  3. PREDNISOLONE [Suspect]
  4. ITRACONAZOLE [Concomitant]
  5. CIPROFLOXACIN [Concomitant]
  6. ACYCLOVIR [Concomitant]
  7. CYCLOSPORINE [Concomitant]

REACTIONS (1)
  - PANCYTOPENIA [None]
